FAERS Safety Report 7707543-3 (Version None)
Quarter: 2011Q3

REPORT INFORMATION
  Report Type: 
  Country: None (occurrence: None)
  Receive Date: 20110818
  Receipt Date: 20110805
  Transmission Date: 20111222
  Serious: Yes (Hospitalization, Other)
  Sender: FDA-Public Use
  Company Number: DSA_47264_2011

PATIENT
  Sex: Female

DRUGS (31)
  1. ATIVAN [Concomitant]
  2. NEULASTA [Concomitant]
  3. CORDRAN [Concomitant]
  4. AMLODIPINE BESYLATE [Concomitant]
  5. HYDROCODONE BITARTRATE [Concomitant]
  6. ELIDEL [Suspect]
     Indication: ECZEMA
     Dosage: (DF TOPICAL)
     Route: 061
     Dates: start: 20030301
  7. IBUPROFEN [Concomitant]
  8. HYDROXYZINE [Concomitant]
  9. PERCOCET [Concomitant]
  10. DOXYCYCLINE [Concomitant]
  11. ATARAX [Concomitant]
  12. RANITIDINE [Concomitant]
  13. MUPIROCIN [Concomitant]
  14. DIFLUCAN [Concomitant]
  15. ASPIRIN [Concomitant]
  16. ZANTAC [Concomitant]
  17. METHYLPREDNISOLONE [Concomitant]
  18. TRIAMCINOLONE [Concomitant]
  19. CEPHALEXIN [Concomitant]
  20. SINGULAIR [Concomitant]
  21. NIZORAL [Concomitant]
  22. SULFAMETHOXAZOLE [Concomitant]
  23. ADVIL LIQUI-GELS [Concomitant]
  24. ALDARA [Concomitant]
  25. AZITHROMYCIN [Concomitant]
  26. LOPROX [Concomitant]
  27. ZYRTEC [Concomitant]
  28. PRENATAL VITAMINS /01549301/ [Concomitant]
  29. TYLENOL (CAPLET) [Concomitant]
  30. SENOKOT /00142205/ [Concomitant]
  31. CORTISONE ACETATE [Concomitant]

REACTIONS (46)
  - MASS [None]
  - HAEMATOCHEZIA [None]
  - HODGKIN'S DISEASE [None]
  - MATERNAL EXPOSURE DURING PREGNANCY [None]
  - KELOID SCAR [None]
  - DYSPHONIA [None]
  - THROAT IRRITATION [None]
  - EAR PAIN [None]
  - MYALGIA [None]
  - ALOPECIA [None]
  - PNEUMOTHORAX [None]
  - PYELOCALIECTASIS [None]
  - ACNE [None]
  - SKIN PAPILLOMA [None]
  - URTICARIA [None]
  - DYSPEPSIA [None]
  - CAESAREAN SECTION [None]
  - FATIGUE [None]
  - LARYNGOCELE [None]
  - VAGINAL HAEMORRHAGE [None]
  - GINGIVAL RECESSION [None]
  - ALLERGY TO ANIMAL [None]
  - MEDIASTINAL CYST [None]
  - HERNIA [None]
  - NASAL CONGESTION [None]
  - HAEMORRHOIDS [None]
  - ATELECTASIS [None]
  - NIGHT SWEATS [None]
  - RASH [None]
  - REFLUX LARYNGITIS [None]
  - FOOD ALLERGY [None]
  - GASTROOESOPHAGEAL REFLUX DISEASE [None]
  - HEPATOMEGALY [None]
  - RHINITIS ALLERGIC [None]
  - DIZZINESS [None]
  - UPPER RESPIRATORY TRACT INFECTION [None]
  - ECZEMA [None]
  - DERMAL CYST [None]
  - PREGNANCY [None]
  - CYST [None]
  - HAND FRACTURE [None]
  - EAR INFECTION [None]
  - CONDITION AGGRAVATED [None]
  - ASTHENIA [None]
  - HEAD INJURY [None]
  - ECCHYMOSIS [None]
